FAERS Safety Report 4955638-X (Version None)
Quarter: 2006Q1

REPORT INFORMATION
  Report Type: 
  Country: None (occurrence: None)
  Receive Date: 20060328
  Receipt Date: 20051011
  Transmission Date: 20060701
  Serious: Yes (Hospitalization)
  Sender: FDA-Public Use
  Company Number: US-MERCK-0510USA06719

PATIENT
  Sex: Male
  Weight: 86 kg

DRUGS (1)
  1. VIOXX [Suspect]
     Indication: ARTHRALGIA
     Route: 048
     Dates: start: 20010725, end: 20030101

REACTIONS (5)
  - ANXIETY [None]
  - DEPRESSION [None]
  - JOINT INJURY [None]
  - MYOCARDIAL INFARCTION [None]
  - THROMBOSIS [None]
